FAERS Safety Report 18080007 (Version 1)
Quarter: 2020Q3

REPORT INFORMATION
  Report Type: Spontaneous
  Country: US (occurrence: US)
  Receive Date: 20200728
  Receipt Date: 20200728
  Transmission Date: 20201103
  Serious: Yes (Hospitalization)
  Sender: FDA-Public Use
  Company Number: None

PATIENT
  Age: 57 Year
  Sex: Male
  Weight: 99 kg

DRUGS (1)
  1. CISPLATIN (CISPLATIN 100MG/VIL (PF) INJ) [Suspect]
     Active Substance: CISPLATIN
     Indication: SMALL CELL LUNG CANCER
     Route: 042
     Dates: start: 20200715, end: 20200715

REACTIONS (7)
  - Contrast media toxicity [None]
  - Inappropriate antidiuretic hormone secretion [None]
  - Acute kidney injury [None]
  - Renal tubular necrosis [None]
  - Toxicity to various agents [None]
  - Ureteric obstruction [None]
  - Blood phosphorus increased [None]

NARRATIVE: CASE EVENT DATE: 20200722
